FAERS Safety Report 7298371-4 (Version None)
Quarter: 2011Q1

REPORT INFORMATION
  Report Type: 
  Country: None (occurrence: None)
  Receive Date: 20110204
  Receipt Date: 20110125
  Transmission Date: 20110831
  Serious: Yes (Other)
  Sender: FDA-Public Use
  Company Number: PD 139

PATIENT
  Age: 4 Year
  Sex: Male

DRUGS (3)
  1. TOPIRAMATE [Concomitant]
  2. CLOBAZAM [Concomitant]
  3. LEVETIRACETAM [Suspect]
     Indication: EPILEPSY
     Dosage: 1,000 MG / DAY

REACTIONS (4)
  - ENCEPHALOPATHY [None]
  - CONDITION AGGRAVATED [None]
  - CONVULSION [None]
  - MYOCLONUS [None]
